FAERS Safety Report 5593653-6 (Version None)
Quarter: 2008Q1

REPORT INFORMATION
  Report Type: 
  Country: None (occurrence: None)
  Receive Date: 20080116
  Receipt Date: 20080111
  Transmission Date: 20080703
  Serious: Yes (Other)
  Sender: FDA-Public Use
  Company Number: CA-WYE-G00883408

PATIENT
  Sex: Male
  Weight: 88.7 kg

DRUGS (16)
  1. TACROLIMUS [Suspect]
     Indication: PROPHYLAXIS AGAINST TRANSPLANT REJECTION
     Route: 048
     Dates: start: 20070801
  2. CELLCEPT [Concomitant]
     Indication: PROPHYLAXIS AGAINST TRANSPLANT REJECTION
     Route: 048
     Dates: start: 20070802
  3. NEXIUM [Concomitant]
     Indication: GASTROOESOPHAGEAL REFLUX DISEASE
     Route: 048
  4. EZETROL [Concomitant]
     Indication: DYSLIPIDAEMIA
     Route: 048
     Dates: start: 20070808
  5. ISONIAZID/PYRIDOXINE HYDROCHLORIDE [Concomitant]
     Indication: ANTIBIOTIC PROPHYLAXIS
     Dosage: 300 / .25 MG PO
     Route: 048
  6. VALCYTE [Concomitant]
     Route: 048
     Dates: start: 20070801
  7. FLOMAX [Concomitant]
     Indication: PROSTATOMEGALY
     Route: 048
  8. LASIX [Concomitant]
     Indication: HYPERTENSION
     Route: 048
     Dates: start: 20071003
  9. CALCIUM GLUCONATE [Concomitant]
     Indication: OSTEOPENIA
     Route: 048
  10. CALCITRIOL [Concomitant]
     Indication: OSTEOPENIA
     Dosage: 0.50 MCG
     Route: 048
  11. HUMULIN 70/30 [Concomitant]
     Indication: DIABETES MELLITUS
     Dosage: PER SCALE
     Route: 058
  12. HUMULIN N [Concomitant]
     Indication: DIABETES MELLITUS
     Dosage: PER SCALE
     Route: 058
  13. BISOPROLOL FUMARATE [Concomitant]
     Indication: HYPERTENSION
     Route: 048
  14. ASPIRIN [Concomitant]
     Indication: ATHEROSCLEROSIS PROPHYLAXIS
     Route: 048
  15. COUMADIN [Concomitant]
     Indication: ANTICOAGULANT THERAPY
     Route: 048
     Dates: start: 20020101
  16. PREDNISONE TAB [Concomitant]
     Indication: PROPHYLAXIS AGAINST TRANSPLANT REJECTION
     Route: 048
     Dates: start: 20071003

REACTIONS (1)
  - PULMONARY EMBOLISM [None]
